FAERS Safety Report 20334277 (Version 5)
Quarter: 2022Q3

REPORT INFORMATION
  Report Type: Report from Study
  Country: CA (occurrence: CA)
  Receive Date: 20220114
  Receipt Date: 20220827
  Transmission Date: 20221027
  Serious: Yes (Other)
  Sender: FDA-Public Use
  Company Number: CA-ABBVIE-22K-028-4232003-00

PATIENT
  Age: 60 Year
  Sex: Female

DRUGS (2)
  1. RINVOQ [Suspect]
     Active Substance: UPADACITINIB
     Indication: Rheumatoid arthritis
     Route: 048
     Dates: start: 20210724, end: 202201
  2. RINVOQ [Suspect]
     Active Substance: UPADACITINIB
     Route: 048
     Dates: start: 2022

REACTIONS (19)
  - Carpal tunnel syndrome [Unknown]
  - Urinary tract infection [Not Recovered/Not Resolved]
  - Gait disturbance [Not Recovered/Not Resolved]
  - Back pain [Unknown]
  - Arthralgia [Unknown]
  - Formication [Unknown]
  - Headache [Not Recovered/Not Resolved]
  - Vomiting [Unknown]
  - Hypophagia [Unknown]
  - Constipation [Unknown]
  - Muscle spasms [Unknown]
  - Inflammation [Recovering/Resolving]
  - Loss of personal independence in daily activities [Recovered/Resolved]
  - Dizziness [Unknown]
  - Malaise [Unknown]
  - Weight decreased [Unknown]
  - Nasopharyngitis [Unknown]
  - Nausea [Unknown]
  - Melaena [Unknown]

NARRATIVE: CASE EVENT DATE: 20210724
